FAERS Safety Report 20769334 (Version 1)
Quarter: 2022Q2

REPORT INFORMATION
  Report Type: Report from Study
  Country: SE (occurrence: SE)
  Receive Date: 20220429
  Receipt Date: 20220429
  Transmission Date: 20220721
  Serious: Yes (Other)
  Sender: FDA-Public Use
  Company Number: SE-BAYER-2022P001317

PATIENT
  Age: 28 Year
  Sex: Female

DRUGS (1)
  1. KYLEENA [Suspect]
     Active Substance: LEVONORGESTREL
     Dosage: 17.5?G/DAY
     Route: 015
     Dates: start: 20220414, end: 20220414

REACTIONS (6)
  - Syncope [Recovered/Resolved]
  - Petit mal epilepsy [Recovered/Resolved]
  - Procedural pain [Recovered/Resolved]
  - Complication of device insertion [Recovered/Resolved]
  - Pallor [Recovered/Resolved]
  - Cold sweat [Recovered/Resolved]

NARRATIVE: CASE EVENT DATE: 20220414
